FAERS Safety Report 7996335-6 (Version None)
Quarter: 2011Q4

REPORT INFORMATION
  Report Type: 
  Country: None (occurrence: None)
  Receive Date: 20111220
  Receipt Date: 20111207
  Transmission Date: 20120403
  Serious: Yes (Hospitalization)
  Sender: FDA-Public Use
  Company Number: US-ELI_LILLY_AND_COMPANY-US200910002069

PATIENT
  Sex: Female
  Weight: 50.79 kg

DRUGS (29)
  1. FORTEO [Suspect]
     Dosage: 20 UG, QD
     Route: 065
  2. FORTEO [Suspect]
     Dosage: 20 UG, QD
  3. FORTEO [Suspect]
     Dosage: 20 UG, QD
  4. SYNTHROID [Concomitant]
  5. FORTEO [Suspect]
     Dosage: 20 UG, QD
  6. EFFEXOR [Concomitant]
  7. FORTEO [Suspect]
     Dosage: 20 UG, QD
  8. FORTEO [Suspect]
     Dosage: 20 UG, QD
  9. FORTEO [Suspect]
     Dosage: 20 UG, QD
  10. FORTEO [Suspect]
     Dosage: 20 UG, QD
  11. FORTEO [Suspect]
     Dosage: 20 UG, QD
  12. FORTEO [Suspect]
     Dosage: 20 UG, QD
  13. LISINOPRIL [Concomitant]
  14. TRAZODONE HCL [Concomitant]
  15. FORTEO [Suspect]
     Dosage: 20 UG, QD
     Route: 065
  16. FORTEO [Suspect]
     Dosage: 20 UG, QD
  17. FORTEO [Suspect]
     Dosage: 20 UG, QD
  18. FORTEO [Suspect]
     Dosage: 20 UG, QD
     Route: 065
     Dates: end: 20110817
  19. VITAMIN D [Concomitant]
  20. FORTEO [Suspect]
     Dosage: 20 UG, QD
     Route: 065
  21. FORTEO [Suspect]
     Dosage: 20 UG, QD
  22. FORTEO [Suspect]
     Dosage: 20 UG, QD
  23. FORTEO [Suspect]
     Indication: OSTEOPOROSIS
     Dosage: 20 UG, QD
     Route: 065
     Dates: start: 20090101
  24. FORTEO [Suspect]
     Dosage: 20 UG, QD
     Route: 065
  25. FORTEO [Suspect]
     Dosage: 20 UG, QD
     Route: 065
  26. FORTEO [Suspect]
     Dosage: 20 UG, QD
  27. FORTEO [Suspect]
     Dosage: 20 UG, QD
  28. FORTEO [Suspect]
     Dosage: 20 UG, QD
  29. FOSAMAX [Concomitant]

REACTIONS (9)
  - NAUSEA [None]
  - OSTEOPOROSIS [None]
  - BONE DENSITY DECREASED [None]
  - GENERAL PHYSICAL HEALTH DETERIORATION [None]
  - INJECTION SITE HAEMATOMA [None]
  - DRUG INEFFECTIVE [None]
  - ARTHRITIS [None]
  - CONSTIPATION [None]
  - EMOTIONAL DISORDER [None]
